FAERS Safety Report 15446533 (Version 1)
Quarter: 2018Q3

REPORT INFORMATION
  Report Type: Spontaneous
  Country: US (occurrence: US)
  Receive Date: 20180928
  Receipt Date: 20180928
  Transmission Date: 20181010
  Serious: Yes (Other)
  Sender: FDA-Public Use
  Company Number: US-AMGEN-USASP2018084074

PATIENT
  Age: 82 Year
  Sex: Female
  Weight: 55.78 kg

DRUGS (2)
  1. PROLIA [Suspect]
     Active Substance: DENOSUMAB
     Indication: OSTEOPOROSIS POSTMENOPAUSAL
     Dosage: UNK, Q6MO
     Route: 065
     Dates: start: 20180305, end: 20180529
  2. PROLIA [Suspect]
     Active Substance: DENOSUMAB
     Indication: HYPERTHYROIDISM

REACTIONS (6)
  - Rash [Not Recovered/Not Resolved]
  - Pain [Unknown]
  - Muscular weakness [Unknown]
  - Sciatica [Unknown]
  - Pain in extremity [Unknown]
  - Back pain [Unknown]

NARRATIVE: CASE EVENT DATE: 201803
